FAERS Safety Report 9834885 (Version 1)
Quarter: 2014Q1

REPORT INFORMATION
  Report Type: Spontaneous
  Country: US (occurrence: US)
  Receive Date: 20140122
  Receipt Date: 20140122
  Transmission Date: 20141002
  Serious: Yes (Hospitalization)
  Sender: FDA-Public Use
  Company Number: US-GLAXOSMITHKLINE-A1056761A

PATIENT
  Sex: Male

DRUGS (5)
  1. ADVAIR HFA [Suspect]
     Indication: CHRONIC OBSTRUCTIVE PULMONARY DISEASE
     Dosage: 2PUFF TWICE PER DAY
     Route: 055
  2. LOPRESSOR [Concomitant]
  3. FLOMAX [Concomitant]
  4. ZOCOR [Concomitant]
  5. CORTISONE CREAM [Concomitant]

REACTIONS (4)
  - Cardiac disorder [Recovering/Resolving]
  - Heart rate increased [Recovering/Resolving]
  - Fluid retention [Recovering/Resolving]
  - Disorientation [Recovering/Resolving]
